FAERS Safety Report 14781605 (Version 3)
Quarter: 2018Q3

REPORT INFORMATION
  Report Type: Spontaneous
  Country: PL (occurrence: PL)
  Receive Date: 20180420
  Receipt Date: 20180723
  Transmission Date: 20181010
  Serious: Yes (Hospitalization)
  Sender: FDA-Public Use
  Company Number: PL-ABBVIE-18K-129-2328573-00

PATIENT
  Age: 57 Year

DRUGS (4)
  1. SINEMET CR [Concomitant]
     Active Substance: CARBIDOPA\LEVODOPA
     Indication: PRODUCT USED FOR UNKNOWN INDICATION
     Dosage: AT NIGHT
     Route: 048
     Dates: start: 20180107
  2. DUODOPA [Suspect]
     Active Substance: CARBIDOPA\LEVODOPA
     Indication: PARKINSON^S DISEASE
     Route: 050
     Dates: start: 20180111, end: 20180331
  3. DUODOPA [Suspect]
     Active Substance: CARBIDOPA\LEVODOPA
     Dosage: 5ML/H
     Route: 050
     Dates: start: 201803, end: 20180617
  4. DUODOPA [Suspect]
     Active Substance: CARBIDOPA\LEVODOPA
     Route: 050
     Dates: start: 20180618

REACTIONS (8)
  - Dysarthria [Unknown]
  - Delusion [Unknown]
  - C-reactive protein increased [Recovered/Resolved]
  - On and off phenomenon [Unknown]
  - Dementia [Unknown]
  - Intentional medical device removal by patient [Recovered/Resolved]
  - Stoma site discharge [Recovered/Resolved]
  - Dyskinesia [Recovered/Resolved]

NARRATIVE: CASE EVENT DATE: 2018
